FAERS Safety Report 9779992 (Version 1)
Quarter: 2013Q4

REPORT INFORMATION
  Report Type: Report from Study
  Country: US (occurrence: US)
  Receive Date: 20131223
  Receipt Date: 20131223
  Transmission Date: 20140711
  Serious: Yes (Other)
  Sender: FDA-Public Use
  Company Number: US-ABBVIE-13P-163-1180988-00

PATIENT
  Age: 26 Year
  Sex: Female
  Weight: 43.13 kg

DRUGS (4)
  1. HUMIRA [Suspect]
     Indication: CROHN^S DISEASE
     Dates: start: 20130530, end: 20130530
  2. HUMIRA [Suspect]
     Dates: start: 20130613, end: 20130613
  3. HUMIRA [Suspect]
     Dates: start: 201312
  4. 6-MP [Concomitant]
     Indication: CROHN^S DISEASE

REACTIONS (10)
  - Intestinal obstruction [Recovered/Resolved]
  - Anal abscess [Not Recovered/Not Resolved]
  - Drug specific antibody present [Not Recovered/Not Resolved]
  - Drug ineffective [Not Recovered/Not Resolved]
  - Fistula [Not Recovered/Not Resolved]
  - Oedema genital [Recovered/Resolved]
  - Flatulence [Recovered/Resolved]
  - Abdominal pain [Recovered/Resolved]
  - Gastrointestinal erosion [Recovered/Resolved]
  - Intestinal ulcer [Recovered/Resolved]
